FAERS Safety Report 4614384-2 (Version None)
Quarter: 2005Q2

REPORT INFORMATION
  Report Type: 
  Country: None (occurrence: None)
  Receive Date: 20050307
  Receipt Date: 20050110
  Transmission Date: 20051028
  Serious: No
  Sender: FDA-Public Use
  Company Number: US_0411108511

PATIENT
  Age: 55 Year
  Sex: Female
  Weight: 80 kg

DRUGS (5)
  1. ALIMITA (PEMETREXED) [Suspect]
     Indication: METASTASIS
     Dosage: 1000 MG
     Dates: start: 20040902, end: 20040902
  2. GEMZAR [Suspect]
     Indication: METASTASIS
     Dosage: 1400 MG
     Dates: start: 20040902, end: 20040902
  3. VITAMIN B-12 [Concomitant]
  4. FOLIC ACID [Concomitant]
  5. CORTICOSTEROID NOS [Concomitant]

REACTIONS (2)
  - DIARRHOEA [None]
  - RASH [None]
